FAERS Safety Report 16844987 (Version 1)
Quarter: 2019Q3

REPORT INFORMATION
  Report Type: Spontaneous
  Country: US (occurrence: US)
  Receive Date: 20190924
  Receipt Date: 20190924
  Transmission Date: 20191005
  Serious: No
  Sender: FDA-Public Use
  Company Number: US-PFIZER INC-2019405799

PATIENT
  Age: 77 Year
  Sex: Female
  Weight: 68.4 kg

DRUGS (1)
  1. GLIPIZIDE XL [Suspect]
     Active Substance: GLIPIZIDE
     Indication: DIABETES MELLITUS
     Dosage: 10 MG, 2X/DAY
     Route: 048

REACTIONS (2)
  - Blood glucose increased [Unknown]
  - Product residue present [Unknown]

NARRATIVE: CASE EVENT DATE: 201906
